FAERS Safety Report 4916988-6 (Version None)
Quarter: 2006Q1

REPORT INFORMATION
  Report Type: 
  Country: None (occurrence: None)
  Receive Date: 20060221
  Receipt Date: 20060210
  Transmission Date: 20060701
  Serious: Yes (Hospitalization)
  Sender: FDA-Public Use
  Company Number: US-ABBOTT-06P-163-0324662-00

PATIENT
  Sex: Female
  Weight: 68.1 kg

DRUGS (1)
  1. HUMIRA [Suspect]
     Indication: RHEUMATOID ARTHRITIS
     Route: 058
     Dates: start: 20060207

REACTIONS (7)
  - BLOOD PRESSURE INCREASED [None]
  - EYE PAIN [None]
  - HEADACHE [None]
  - INJECTION SITE URTICARIA [None]
  - NAUSEA [None]
  - PHOTOSENSITIVITY ALLERGIC REACTION [None]
  - URTICARIA [None]
